FAERS Safety Report 17163001 (Version 1)
Quarter: 2019Q4

REPORT INFORMATION
  Report Type: Spontaneous
  Country: US (occurrence: US)
  Receive Date: 20191216
  Receipt Date: 20191216
  Transmission Date: 20200122
  Serious: Yes (Hospitalization)
  Sender: FDA-Public Use
  Company Number: None

PATIENT
  Age: 77 Year
  Sex: Female
  Weight: 80.4 kg

DRUGS (5)
  1. VITAMIN B12 100MCG DAILY [Concomitant]
  2. VITAMIN D 1000 UNITS DAILY [Concomitant]
  3. APIXABAN [Suspect]
     Active Substance: APIXABAN
     Indication: ATRIAL FIBRILLATION
     Route: 048
     Dates: start: 20151228
  4. HYDROXYUREA 500MG DAILY [Concomitant]
  5. ASPIRIN. [Suspect]
     Active Substance: ASPIRIN
     Route: 048
     Dates: start: 20130520

REACTIONS (3)
  - Gastrointestinal haemorrhage [None]
  - Rectal haemorrhage [None]
  - Abdominal pain lower [None]

NARRATIVE: CASE EVENT DATE: 20150512
